FAERS Safety Report 9239020 (Version 2)
Quarter: 2013Q3

REPORT INFORMATION
  Report Type: Spontaneous
  Country: CN (occurrence: CN)
  Receive Date: 20130418
  Receipt Date: 20130822
  Transmission Date: 20140515
  Serious: Yes (Other)
  Sender: FDA-Public Use
  Company Number: CN-ROCHE-1215980

PATIENT
  Age: 60 Year
  Sex: Male
  Weight: 42 kg

DRUGS (2)
  1. HERCEPTIN [Suspect]
     Indication: GASTRIC CANCER
     Route: 041
     Dates: start: 2011
  2. HERCEPTIN [Suspect]
     Route: 041
     Dates: start: 20130412, end: 20130412

REACTIONS (1)
  - Metastases to liver [Unknown]
